FAERS Safety Report 9476728 (Version 1)
Quarter: 2013Q3

REPORT INFORMATION
  Report Type: Spontaneous
  Country: US (occurrence: US)
  Receive Date: 20130826
  Receipt Date: 20130826
  Transmission Date: 20140515
  Serious: No
  Sender: FDA-Public Use
  Company Number: US-BRISTOL-MYERS SQUIBB COMPANY-17316464

PATIENT
  Sex: Female

DRUGS (1)
  1. KENALOG-40 INJ [Suspect]
     Dosage: INJECTABLE SUSPENSION USP

REACTIONS (1)
  - Flushing [Unknown]
